FAERS Safety Report 6283987 (Version 3)
Quarter: 2013Q4

REPORT INFORMATION
  Report Type: Spontaneous
  Country: US (occurrence: None)
  Receive Date: 20061205
  Receipt Date: 20131224
  Transmission Date: 20140711
  Serious: Yes (Other)
  Sender: FDA-Public Use
  Company Number: PHEH2006US12931

PATIENT
  Age: 40 Year
  Sex: Female
  Weight: 48.5 kg

DRUGS (3)
  1. EXJADE [Suspect]
     Indication: IRON OVERLOAD
     Dosage: 1000 MG, QD, ORAL : 500 MG, QD, ORAL : 500 MG, QD, ORAL : 500 MG, QD, ORAL
     Route: 048
     Dates: start: 200601, end: 200605
  2. MULTIVITAMINS (ASCORBIC ACID, ERGOCALCIFEROL, FOLIC ACID, NICOTINAMIDE, PANTHENOL,...) [Concomitant]
  3. DETROL [Concomitant]

REACTIONS (11)
  - Paraesthesia [None]
  - Blood urea increased [None]
  - Blood iron increased [None]
  - Oral pain [None]
  - Candida infection [None]
  - Haematocrit decreased [None]
  - Haemoglobin decreased [None]
  - Red blood cell count decreased [None]
  - Serum ferritin increased [None]
  - Candida infection [None]
  - Mean cell volume increased [None]
